FAERS Safety Report 21541943 (Version 2)
Quarter: 2024Q2

REPORT INFORMATION
  Report Type: Report from Study
  Country: US (occurrence: US)
  Receive Date: 20221102
  Receipt Date: 20240424
  Transmission Date: 20240717
  Serious: No
  Sender: FDA-Public Use
  Company Number: US-ABBVIE-4137341

PATIENT
  Sex: Male

DRUGS (6)
  1. RINVOQ [Suspect]
     Active Substance: UPADACITINIB
     Indication: Rheumatoid arthritis
     Route: 048
  2. MODERNA COVID-19 VACCINE [Concomitant]
     Active Substance: ELASOMERAN
     Indication: COVID-19 immunisation
     Dosage: 1ST DOSE?1 IN ONCE
     Route: 030
     Dates: start: 20210130, end: 20210130
  3. MODERNA COVID-19 VACCINE [Concomitant]
     Active Substance: ELASOMERAN
     Indication: COVID-19 immunisation
     Dosage: 2ND DOSE?1 IN ONCE
     Route: 030
     Dates: start: 20210304, end: 20210304
  4. MODERNA COVID-19 VACCINE [Concomitant]
     Active Substance: ELASOMERAN
     Indication: COVID-19 immunisation
     Dosage: 3RD DOSE?1 IN ONCE
     Route: 030
     Dates: start: 20210909, end: 20210909
  5. MODERNA COVID-19 VACCINE [Concomitant]
     Active Substance: ELASOMERAN
     Indication: COVID-19 immunisation
     Dosage: 2ND BOOSTER?1 IN ONCE
     Route: 030
     Dates: start: 20220427, end: 20220427
  6. MODERNA COVID-19 VACCINE [Concomitant]
     Active Substance: ELASOMERAN
     Indication: COVID-19 immunisation
     Dosage: FIRST BOOSTER?1 IN ONCE
     Route: 030

REACTIONS (1)
  - Blood glucose increased [Recovered/Resolved]
